FAERS Safety Report 5875189-8 (Version None)
Quarter: 2008Q3

REPORT INFORMATION
  Report Type: 
  Country: None (occurrence: None)
  Receive Date: 20080909
  Receipt Date: 20080828
  Transmission Date: 20090109
  Serious: Yes (Other)
  Sender: FDA-Public Use
  Company Number: US-BAYER-200832859NA

PATIENT
  Age: 42 Year
  Sex: Female

DRUGS (2)
  1. CIPRO [Suspect]
     Indication: DRUG USE FOR UNKNOWN INDICATION
     Dates: start: 20080601
  2. ISOTRETINOIN [Suspect]
     Indication: SWEAT GLAND INFECTION
     Dosage: TOTAL DAILY DOSE: 80 MG
     Dates: start: 20080602, end: 20080626

REACTIONS (3)
  - ABDOMINAL PAIN [None]
  - CLOSTRIDIAL INFECTION [None]
  - HEPATIC ENZYME INCREASED [None]
